FAERS Safety Report 5140047-3 (Version None)
Quarter: 2006Q4

REPORT INFORMATION
  Report Type: 
  Country: None (occurrence: None)
  Receive Date: 20061025
  Receipt Date: 20061025
  Transmission Date: 20070319
  Serious: Yes (Hospitalization)
  Sender: FDA-Public Use
  Company Number: None

PATIENT
  Age: 71 Year
  Sex: Male
  Weight: 63.05 kg

DRUGS (1)
  1. HYDROXYCHLOROQUINE SULFATE [Suspect]
     Indication: RHEUMATOID ARTHRITIS
     Dosage: 200 MG PO BID
     Route: 048
     Dates: start: 20060613, end: 20060808

REACTIONS (7)
  - CHAPPED LIPS [None]
  - HAEMOPTYSIS [None]
  - MOUTH ULCERATION [None]
  - ORAL PAIN [None]
  - PANCYTOPENIA [None]
  - PHARYNGOLARYNGEAL PAIN [None]
  - THROMBOCYTOPENIA [None]
